FAERS Safety Report 8786617 (Version 1)
Quarter: 2012Q4

REPORT INFORMATION
  Report Type: 
  Country: DE (occurrence: DE)
  Receive Date: 20120914
  Receipt Date: 20120914
  Transmission Date: 20130627
  Serious: Yes (Hospitalization)
  Sender: FDA-Public Use
  Company Number: PHHY2012DE079516

PATIENT
  Age: 74 Year
  Sex: Female

DRUGS (1)
  1. TRIAMCINOLONE [Suspect]
     Indication: BACK PAIN

REACTIONS (3)
  - Paraparesis [Recovered/Resolved]
  - Staphylococcal abscess [Recovered/Resolved]
  - Back pain [Recovered/Resolved]
